FAERS Safety Report 6397906-3 (Version None)
Quarter: 2009Q4

REPORT INFORMATION
  Report Type: 
  Country: None (occurrence: None)
  Receive Date: 20091013
  Receipt Date: 20091004
  Transmission Date: 20100525
  Serious: Yes (Hospitalization)
  Sender: FDA-Public Use
  Company Number: CA-ALLERGAN-0913882US

PATIENT
  Age: 53 Year
  Sex: Male

DRUGS (8)
  1. BOTOX [Suspect]
     Indication: CERVICAL SPINAL STENOSIS
     Dosage: 600 UNITS, SINGLE
     Route: 030
     Dates: start: 20080201, end: 20080201
  2. BOTOX [Suspect]
     Dosage: 600 UNITS, SINGLE
     Route: 030
     Dates: start: 20070701, end: 20070701
  3. BOTOX [Suspect]
     Dosage: 600 UNITS, SINGLE
     Dates: start: 20070201, end: 20070201
  4. BOTOX [Suspect]
     Dosage: 600 UNITS, SINGLE
     Dates: start: 20061101, end: 20061101
  5. BOTOX [Suspect]
     Dosage: 600 UNITS, SINGLE
     Dates: start: 20060601, end: 20060601
  6. BOTOX [Suspect]
     Dosage: 600 UNITS, SINGLE
     Dates: start: 20060201, end: 20060201
  7. BOTOX [Suspect]
     Dosage: 600 UNITS, SINGLE
     Dates: start: 20040401, end: 20040401
  8. BOTOX [Suspect]
     Dosage: 600 UNITS, SINGLE
     Dates: start: 20040101, end: 20040101

REACTIONS (1)
  - ASTHENIA [None]
